FAERS Safety Report 21017485 (Version 1)
Quarter: 2022Q2

REPORT INFORMATION
  Report Type: Spontaneous
  Country: US (occurrence: US)
  Receive Date: 20220628
  Receipt Date: 20220628
  Transmission Date: 20220721
  Serious: Yes (Other)
  Sender: FDA-Public Use
  Company Number: US-PFIZER INC-202200894034

PATIENT
  Age: 72 Year
  Sex: Male
  Weight: 83.91 kg

DRUGS (3)
  1. DILANTIN [Suspect]
     Active Substance: PHENYTOIN
     Indication: Generalised tonic-clonic seizure
     Dosage: 400 MG, DAILY
     Route: 048
     Dates: start: 1969
  2. MYSOLINE [Suspect]
     Active Substance: PRIMIDONE
     Indication: Generalised tonic-clonic seizure
     Dosage: 250 MG, 1X/DAY(250MG PER TABLET, 1 TABLET A DAY)
     Route: 048
     Dates: start: 1969
  3. PHENOBARBITAL [Suspect]
     Active Substance: PHENOBARBITAL
     Indication: Generalised tonic-clonic seizure
     Dosage: 97.2 MG, DAILY ( 3 TABLETS A DAY, 32.4MG PER TABLET)
     Route: 048
     Dates: start: 1969

REACTIONS (7)
  - Dental operation [Unknown]
  - Dental prosthesis placement [Unknown]
  - Feeling abnormal [Unknown]
  - Peripheral swelling [Unknown]
  - Toxicity to various agents [Unknown]
  - Limb discomfort [Unknown]
  - Weight decreased [Unknown]
